FAERS Safety Report 13201698 (Version 2)
Quarter: 2018Q3

REPORT INFORMATION
  Report Type: Report from Study
  Country: JP (occurrence: JP)
  Receive Date: 20170209
  Receipt Date: 20180719
  Transmission Date: 20181010
  Serious: Yes (Hospitalization, Other)
  Sender: FDA-Public Use
  Company Number: JP-AMGEN-JPNNI2017021116

PATIENT
  Age: 67 Year
  Sex: Female

DRUGS (7)
  1. NESP [Suspect]
     Active Substance: DARBEPOETIN ALFA
     Dosage: UNK
     Route: 042
     Dates: start: 20160226, end: 20160318
  2. CINACALCET HCL [Suspect]
     Active Substance: CINACALCET HYDROCHLORIDE
     Indication: PRODUCT USED FOR UNKNOWN INDICATION
     Dosage: UNK
     Route: 048
     Dates: start: 20151001, end: 20160203
  3. NESP [Suspect]
     Active Substance: DARBEPOETIN ALFA
     Dosage: UNK
     Route: 042
     Dates: start: 20160722, end: 20160923
  4. NESP [Suspect]
     Active Substance: DARBEPOETIN ALFA
     Indication: PRODUCT USED FOR UNKNOWN INDICATION
     Dosage: UNK
     Route: 042
     Dates: start: 20160205, end: 20160219
  5. NESP [Suspect]
     Active Substance: DARBEPOETIN ALFA
     Dosage: UNK
     Route: 042
     Dates: start: 20160325, end: 20160401
  6. NESP [Suspect]
     Active Substance: DARBEPOETIN ALFA
     Dosage: UNK
     Route: 042
     Dates: start: 20160506, end: 20160624
  7. NESP [Suspect]
     Active Substance: DARBEPOETIN ALFA
     Dosage: UNK
     Route: 042
     Dates: start: 20160408, end: 20160429

REACTIONS (5)
  - Hepatic cyst infection [Recovering/Resolving]
  - Ischaemic stroke [Recovering/Resolving]
  - Ischaemic stroke [Recovering/Resolving]
  - Hepatic cyst infection [Recovering/Resolving]
  - Hyperparathyroidism [Recovering/Resolving]

NARRATIVE: CASE EVENT DATE: 20160726
